APPROVED DRUG PRODUCT: ETODOLAC
Active Ingredient: ETODOLAC
Strength: 400MG
Dosage Form/Route: TABLET;ORAL
Application: A074847 | Product #001
Applicant: TEVA PHARMACEUTICALS USA INC
Approved: Apr 23, 1999 | RLD: No | RS: No | Type: DISCN